FAERS Safety Report 10332012 (Version 3)
Quarter: 2014Q3

REPORT INFORMATION
  Report Type: Report from Study
  Country: US (occurrence: US)
  Receive Date: 20140722
  Receipt Date: 20140923
  Transmission Date: 20150326
  Serious: Yes (Other)
  Sender: FDA-Public Use
  Company Number: US-BRISTOL-MYERS SQUIBB COMPANY-20752374

PATIENT
  Age: 5 Year
  Sex: Female

DRUGS (4)
  1. ENTECAVIR ORAL SOLN [Suspect]
     Active Substance: ENTECAVIR
     Indication: HEPATITIS B
     Route: 048
     Dates: start: 20140318, end: 20140515
  2. HEPATITIS A VACCINE NOS [Suspect]
     Active Substance: HEPATITIS A VACCINE, INACTIVATED
     Indication: IMMUNISATION
     Dosage: INJECTION
     Route: 058
     Dates: start: 20140513
  3. DIPHTHERIA AND TETANUS TOXOIDS AND PERTUSSIS VACCINE ADSORBED NOS [Suspect]
     Active Substance: DIPHTHERIA AND TETANUS TOXOIDS AND PERTUSSIS VACCINE
     Indication: IMMUNISATION
     Dosage: INJECTION
     Route: 058
     Dates: start: 20140513
  4. VARICELLA-ZOSTER VACCINE [Suspect]
     Active Substance: VARICELLA-ZOSTER VIRUS STRAIN OKA/MERCK LIVE ANTIGEN
     Indication: IMMUNISATION
     Dosage: INJECTION
     Route: 058
     Dates: start: 20140513

REACTIONS (2)
  - Febrile convulsion [Recovered/Resolved]
  - Pneumonia [Unknown]

NARRATIVE: CASE EVENT DATE: 20140514
